FAERS Safety Report 4493457-1 (Version None)
Quarter: 2004Q4

REPORT INFORMATION
  Report Type: 
  Country: None (occurrence: None)
  Receive Date: 20041105
  Receipt Date: 20041021
  Transmission Date: 20050328
  Serious: Yes (Other)
  Sender: FDA-Public Use
  Company Number: JP-JNJFOC-20040908301

PATIENT
  Sex: Male

DRUGS (3)
  1. ITRIZOLE [Suspect]
     Indication: ONYCHOMYCOSIS
     Route: 049
     Dates: start: 20040908, end: 20040915
  2. MECOBALAMIN [Concomitant]
     Route: 049
  3. TOCOPHEROL CONCENTRATE CAP [Concomitant]
     Route: 049

REACTIONS (2)
  - DRUG ERUPTION [None]
  - ERYTHEMA MULTIFORME [None]
